FAERS Safety Report 13142883 (Version 1)
Quarter: 2017Q1

REPORT INFORMATION
  Report Type: Spontaneous
  Country: CH (occurrence: CH)
  Receive Date: 20170123
  Receipt Date: 20170123
  Transmission Date: 20170428
  Serious: Yes (Hospitalization)
  Sender: FDA-Public Use
  Company Number: PHHY2017CH004069

PATIENT
  Age: 85 Year
  Sex: Female
  Weight: 71 kg

DRUGS (6)
  1. OXYNORM [Interacting]
     Active Substance: OXYCODONE HYDROCHLORIDE
     Indication: PAIN
     Dosage: 3 MG
     Route: 048
  2. TRANXILIUM [Interacting]
     Active Substance: CLORAZEPATE DIPOTASSIUM
     Indication: ANXIETY
     Dosage: 10 MG, BID
     Route: 048
     Dates: start: 2016, end: 20161107
  3. SERESTA [Interacting]
     Active Substance: OXAZEPAM
     Indication: ANXIETY
     Dosage: 7.5 MG
     Route: 048
     Dates: end: 20161107
  4. FENTANYL. [Interacting]
     Active Substance: FENTANYL
     Indication: PAIN
     Dosage: 75 UG
     Route: 050
     Dates: start: 2016
  5. METO ZEROK [Interacting]
     Active Substance: METOPROLOL SUCCINATE
     Indication: PRODUCT USED FOR UNKNOWN INDICATION
     Dosage: 25 MG, QD
     Route: 048
  6. CITALOPRAM [Suspect]
     Active Substance: CITALOPRAM HYDROBROMIDE
     Indication: PRODUCT USED FOR UNKNOWN INDICATION
     Dosage: 40 MG, QD
     Route: 048
     Dates: end: 20161207

REACTIONS (4)
  - Drug prescribing error [Recovering/Resolving]
  - Fall [Recovered/Resolved]
  - Somnolence [Unknown]
  - Spinal fracture [Unknown]

NARRATIVE: CASE EVENT DATE: 2016
